FAERS Safety Report 15182814 (Version 2)
Quarter: 2018Q3

REPORT INFORMATION
  Report Type: Report from Study
  Country: US (occurrence: US)
  Receive Date: 20180723
  Receipt Date: 20180821
  Transmission Date: 20181010
  Serious: Yes (Hospitalization)
  Sender: FDA-Public Use
  Company Number: US-PFIZER INC-2018202991

PATIENT
  Age: 51 Year
  Sex: Male
  Weight: 124.72 kg

DRUGS (26)
  1. BLINDED CELECOXIB [Suspect]
     Active Substance: CELECOXIB
     Indication: OSTEOARTHRITIS
     Dosage: BLINDED THERAPY (SUBCUTANEOUS), EVERY 8 WEEKS
     Route: 058
     Dates: start: 20170731, end: 20180312
  2. BLINDED DICLOFENAC [Suspect]
     Active Substance: DICLOFENAC
     Indication: OSTEOARTHRITIS
     Dosage: BLINDED THERAPY (SUBCUTANEOUS), EVERY 8 WEEKS
     Route: 058
     Dates: start: 20170731, end: 20180312
  3. BLINDED PLACEBO [Suspect]
     Active Substance: INVESTIGATIONAL PRODUCT
     Indication: OSTEOARTHRITIS
     Dosage: BLINDED THERAPY (SUBCUTANEOUS), EVERY 8 WEEKS
     Route: 058
     Dates: start: 20170731, end: 20180312
  4. BLINDED DICLOFENAC [Suspect]
     Active Substance: DICLOFENAC
     Dosage: BLINDED THERAPY (ORAL), 2X/DAY
     Route: 048
     Dates: start: 20170731, end: 20180507
  5. BLINDED DICLOFENAC [Suspect]
     Active Substance: DICLOFENAC
     Dosage: BLINDED THERAPY (ORAL), 2X/DAY
     Route: 048
     Dates: start: 20170731, end: 20180507
  6. BLINDED NAPROXEN [Suspect]
     Active Substance: NAPROXEN
     Dosage: BLINDED THERAPY (ORAL), 2X/DAY
     Route: 048
     Dates: start: 20170731, end: 20180507
  7. BLINDED PF?04383119 [Suspect]
     Active Substance: TANEZUMAB
     Indication: OSTEOARTHRITIS
     Dosage: BLINDED THERAPY (SUBCUTANEOUS), EVERY 8 WEEKS
     Route: 058
     Dates: start: 20170731, end: 20180312
  8. BLINDED PF?04383119 [Suspect]
     Active Substance: TANEZUMAB
     Dosage: BLINDED THERAPY (ORAL), 2X/DAY
     Route: 048
     Dates: start: 20170731, end: 20180507
  9. BLINDED CELECOXIB [Suspect]
     Active Substance: CELECOXIB
     Dosage: BLINDED THERAPY (ORAL), 2X/DAY
     Route: 048
     Dates: start: 20170731, end: 20180507
  10. BLINDED PLACEBO [Suspect]
     Active Substance: INVESTIGATIONAL PRODUCT
     Dosage: BLINDED THERAPY (ORAL), 2X/DAY
     Route: 048
     Dates: start: 20170731, end: 20180507
  11. BLINDED PLACEBO [Suspect]
     Active Substance: INVESTIGATIONAL PRODUCT
     Dosage: BLINDED THERAPY (ORAL), 2X/DAY
     Route: 048
     Dates: start: 20170731, end: 20180507
  12. BLINDED CELECOXIB [Suspect]
     Active Substance: CELECOXIB
     Indication: OSTEOARTHRITIS
     Dosage: BLINDED THERAPY (SUBCUTANEOUS), EVERY 8 WEEKS
     Route: 058
     Dates: start: 20170731, end: 20180312
  13. BLINDED PLACEBO [Suspect]
     Active Substance: INVESTIGATIONAL PRODUCT
     Indication: OSTEOARTHRITIS
     Dosage: BLINDED THERAPY (SUBCUTANEOUS), EVERY 8 WEEKS
     Route: 058
     Dates: start: 20170731, end: 20180312
  14. BLINDED NAPROXEN [Suspect]
     Active Substance: NAPROXEN
     Dosage: BLINDED THERAPY (ORAL), 2X/DAY
     Route: 048
     Dates: start: 20170731, end: 20180507
  15. BLINDED DICLOFENAC [Suspect]
     Active Substance: DICLOFENAC
     Indication: OSTEOARTHRITIS
     Dosage: BLINDED THERAPY (SUBCUTANEOUS), EVERY 8 WEEKS
     Route: 058
     Dates: start: 20170731, end: 20180312
  16. BLINDED NAPROXEN [Suspect]
     Active Substance: NAPROXEN
     Indication: OSTEOARTHRITIS
     Dosage: BLINDED THERAPY (SUBCUTANEOUS), EVERY 8 WEEKS
     Route: 058
     Dates: start: 20170731, end: 20180312
  17. BLINDED NAPROXEN [Suspect]
     Active Substance: NAPROXEN
     Indication: OSTEOARTHRITIS
     Dosage: BLINDED THERAPY (SUBCUTANEOUS), EVERY 8 WEEKS
     Route: 058
     Dates: start: 20170731, end: 20180312
  18. BLINDED PF?04383119 [Suspect]
     Active Substance: TANEZUMAB
     Indication: OSTEOARTHRITIS
     Dosage: BLINDED THERAPY (SUBCUTANEOUS), EVERY 8 WEEKS
     Route: 058
     Dates: start: 20170731, end: 20180312
  19. BLINDED CELECOXIB [Suspect]
     Active Substance: CELECOXIB
     Dosage: BLINDED THERAPY (ORAL), 2X/DAY
     Route: 048
     Dates: start: 20170731, end: 20180507
  20. BLINDED PF?04383119 [Suspect]
     Active Substance: TANEZUMAB
     Dosage: BLINDED THERAPY (ORAL), 2X/DAY
     Route: 048
     Dates: start: 20170731, end: 20180507
  21. BLINDED PLACEBO [Suspect]
     Active Substance: INVESTIGATIONAL PRODUCT
     Indication: OSTEOARTHRITIS
     Dosage: BLINDED THERAPY (SUBCUTANEOUS), EVERY 8 WEEKS
     Route: 058
     Dates: start: 20170731, end: 20180312
  22. BLINDED PLACEBO [Suspect]
     Active Substance: INVESTIGATIONAL PRODUCT
     Dosage: BLINDED THERAPY (ORAL), 2X/DAY
     Route: 048
     Dates: start: 20170731, end: 20180507
  23. BLINDED PLACEBO [Suspect]
     Active Substance: INVESTIGATIONAL PRODUCT
     Indication: OSTEOARTHRITIS
     Dosage: BLINDED THERAPY (SUBCUTANEOUS), EVERY 8 WEEKS
     Route: 058
     Dates: start: 20170731, end: 20180312
  24. BLINDED PLACEBO [Suspect]
     Active Substance: INVESTIGATIONAL PRODUCT
     Dosage: BLINDED THERAPY (ORAL), 2X/DAY
     Route: 048
     Dates: start: 20170731, end: 20180507
  25. FENTANYL CITRATE. [Suspect]
     Active Substance: FENTANYL CITRATE
     Indication: KNEE ARTHROPLASTY
     Dosage: 50 MCG, ONCE
     Route: 042
     Dates: start: 20180515, end: 20180515
  26. CELEXA [Concomitant]
     Active Substance: CITALOPRAM HYDROBROMIDE
     Indication: DEPRESSION
     Dosage: 20 MG, 1X/DAY
     Route: 048
     Dates: start: 20170821

REACTIONS (1)
  - Hypotension [Recovered/Resolved]

NARRATIVE: CASE EVENT DATE: 20180515
